FAERS Safety Report 5701789-1 (Version None)
Quarter: 2008Q2

REPORT INFORMATION
  Report Type: 
  Country: None (occurrence: None)
  Receive Date: 20080410
  Receipt Date: 20080410
  Transmission Date: 20081010
  Serious: Yes (Life-Threatening, Hospitalization)
  Sender: FDA-Public Use
  Company Number: None

PATIENT
  Age: 72 Year
  Sex: Female
  Weight: 36.2878 kg

DRUGS (3)
  1. TAPAZOLE [Suspect]
     Indication: PSYCHOMOTOR HYPERACTIVITY
     Dosage: 30 MG ONCE DAILY ORAL
     Route: 048
     Dates: start: 20071207, end: 20071222
  2. TOPROL-XL [Concomitant]
  3. CALCIUM TAB [Concomitant]

REACTIONS (7)
  - ABASIA [None]
  - BASEDOW'S DISEASE [None]
  - CONDITION AGGRAVATED [None]
  - COORDINATION ABNORMAL [None]
  - DELUSION [None]
  - MUSCULAR WEAKNESS [None]
  - WHITE BLOOD CELL COUNT DECREASED [None]
